FAERS Safety Report 19831449 (Version 1)
Quarter: 2021Q3

REPORT INFORMATION
  Report Type: Spontaneous
  Country: US (occurrence: US)
  Receive Date: 20210915
  Receipt Date: 20210915
  Transmission Date: 20211014
  Serious: Yes (Life-Threatening, Hospitalization)
  Sender: FDA-Public Use
  Company Number: None

PATIENT
  Age: 30 Year
  Sex: Male
  Weight: 97.43 kg

DRUGS (4)
  1. REGEN?COV [Suspect]
     Active Substance: CASIRIVIMAB\IMDEVIMAB
  2. BENADRYL [Concomitant]
     Active Substance: DIPHENHYDRAMINE HYDROCHLORIDE
     Dates: start: 20210914, end: 20210914
  3. EPINEPHRINE. [Concomitant]
     Active Substance: EPINEPHRINE
     Dates: start: 20210914, end: 20210914
  4. NITROGLYCERIN. [Concomitant]
     Active Substance: NITROGLYCERIN
     Dates: start: 20210914, end: 20210914

REACTIONS (10)
  - Tachycardia [None]
  - Feeling cold [None]
  - Oxygen saturation decreased [None]
  - Chest pain [None]
  - Chills [None]
  - Dyspnoea [None]
  - Tremor [None]
  - COVID-19 pneumonia [None]
  - Hypoxia [None]
  - Cold sweat [None]

NARRATIVE: CASE EVENT DATE: 20210914
